FAERS Safety Report 22611248 (Version 1)
Quarter: 2023Q2

REPORT INFORMATION
  Report Type: Spontaneous
  Country: US (occurrence: US)
  Receive Date: 20230616
  Receipt Date: 20230616
  Transmission Date: 20230722
  Serious: No
  Sender: FDA-Public Use
  Company Number: US-JNJFOC-20230636540

PATIENT
  Sex: Female

DRUGS (4)
  1. UPTRAVI [Suspect]
     Active Substance: SELEXIPAG
     Indication: Product used for unknown indication
     Dosage: 1/4 TABLET TWICE DAILY, QD
     Route: 048
  2. AMBRISENTAN [Suspect]
     Active Substance: AMBRISENTAN
     Indication: Pulmonary hypertension
     Route: 065
     Dates: start: 20200220
  3. ADCIRCA [Concomitant]
     Active Substance: TADALAFIL
  4. DILTIAZEM [Concomitant]
     Active Substance: DILTIAZEM

REACTIONS (1)
  - Headache [Not Recovered/Not Resolved]
